FAERS Safety Report 10925854 (Version 2)
Quarter: 2015Q3

REPORT INFORMATION
  Report Type: Spontaneous
  Country: FR (occurrence: FR)
  Receive Date: 20150318
  Receipt Date: 20150709
  Transmission Date: 20151125
  Serious: Yes (Hospitalization)
  Sender: FDA-Public Use
  Company Number: FR-GE HEALTHCARE MEDICAL DIAGNOSTICS-OMPQ-PR-1503S-0214

PATIENT
  Age: 62 Year
  Sex: Male

DRUGS (5)
  1. ETOPOSIDE. [Concomitant]
     Active Substance: ETOPOSIDE
     Dates: start: 20150102, end: 20150105
  2. OMNIPAQUE [Suspect]
     Active Substance: IOHEXOL
     Indication: PYREXIA
     Dosage: DOSE NOT REPORTED
     Route: 042
     Dates: start: 20141231, end: 20141231
  3. OMNIPAQUE [Suspect]
     Active Substance: IOHEXOL
     Indication: DIAGNOSTIC PROCEDURE
  4. LEVACT [Suspect]
     Active Substance: BENDAMUSTINE HYDROCHLORIDE
     Route: 042
     Dates: start: 20141231, end: 20150101
  5. CYTARABINE. [Concomitant]
     Active Substance: CYTARABINE
     Dates: start: 20150102, end: 20150105

REACTIONS (2)
  - Acute kidney injury [Recovered/Resolved]
  - Blood glucose increased [Recovered/Resolved]

NARRATIVE: CASE EVENT DATE: 20150101
